FAERS Safety Report 13252659 (Version 1)
Quarter: 2017Q1

REPORT INFORMATION
  Report Type: Spontaneous
  Country: GB (occurrence: GB)
  Receive Date: 20170220
  Receipt Date: 20170220
  Transmission Date: 20170428
  Serious: Yes (Hospitalization, Disabling)
  Sender: FDA-Public Use
  Company Number: US-ASTRAZENECA-2017SE18811

PATIENT
  Age: 89 Year

DRUGS (15)
  1. LANSOPRAZOLE. [Suspect]
     Active Substance: LANSOPRAZOLE
     Indication: PRODUCT USED FOR UNKNOWN INDICATION
     Route: 065
  2. NITRAZEPAM [Concomitant]
     Active Substance: NITRAZEPAM
  3. IVABRADINE [Suspect]
     Active Substance: IVABRADINE
     Indication: PRODUCT USED FOR UNKNOWN INDICATION
     Route: 065
  4. OXYBUTYNIN [Concomitant]
     Active Substance: OXYBUTYNIN
  5. SALBUTAMOL [Concomitant]
     Active Substance: ALBUTEROL
     Dosage: UNK
     Route: 055
  6. MIRABEGRON [Concomitant]
     Active Substance: MIRABEGRON
  7. PARACETAMOL [Concomitant]
     Active Substance: ACETAMINOPHEN
  8. RIVAROXABAN [Concomitant]
     Active Substance: RIVAROXABAN
  9. CANDESARTAN [Suspect]
     Active Substance: CANDESARTAN
     Indication: PRODUCT USED FOR UNKNOWN INDICATION
     Route: 048
  10. SIMVASTATIN. [Concomitant]
     Active Substance: SIMVASTATIN
  11. FUROSEMIDE. [Suspect]
     Active Substance: FUROSEMIDE
     Indication: PRODUCT USED FOR UNKNOWN INDICATION
     Route: 065
  12. SERETIDE [Concomitant]
     Active Substance: FLUTICASONE PROPIONATE\SALMETEROL XINAFOATE
     Dosage: UNK UNK, BID
     Route: 055
  13. TIOTROPIUM [Concomitant]
     Active Substance: TIOTROPIUM
  14. QUININE [Suspect]
     Active Substance: QUININE
     Indication: PRODUCT USED FOR UNKNOWN INDICATION
     Route: 065
  15. ISPAGHULA EXTRACT\PSYLLIUM [Concomitant]
     Active Substance: PLANTAGO OVATA SEED\PLANTAGO SEED

REACTIONS (3)
  - Electrocardiogram QT prolonged [Unknown]
  - Fall [Unknown]
  - Hypokalaemia [Unknown]
